FAERS Safety Report 8748152 (Version 2)
Quarter: 2012Q4

REPORT INFORMATION
  Report Type: 
  Country: US (occurrence: US)
  Receive Date: 20120827
  Receipt Date: 20120911
  Transmission Date: 20130627
  Serious: Yes (Hospitalization)
  Sender: FDA-Public Use
  Company Number: CHPA2012US017962

PATIENT
  Age: 68 Year
  Sex: Female

DRUGS (10)
  1. PREVACID 24HR 15MG [Suspect]
     Indication: GASTROOESOPHAGEAL REFLUX DISEASE
     Dosage: 30 mg, QD
     Route: 048
     Dates: start: 201206
  2. PREVACID 24HR 15MG [Suspect]
     Dosage: 30 mg a day
     Route: 048
     Dates: start: 2009, end: 201205
  3. PREVACID 24HR 15MG [Suspect]
     Dosage: 15 mg, QD
     Route: 048
  4. LANSOPRAZOLE [Suspect]
     Dosage: Unk, Unk
  5. STEROIDS [Suspect]
     Indication: COUGH
     Dosage: Unk, Unk
     Route: 048
     Dates: start: 201108, end: 20110923
  6. STEROIDS [Suspect]
     Dosage: Unk, Unk
     Route: 042
  7. ALLERGY MEDICATION [Suspect]
     Indication: HYPERSENSITIVITY
     Dosage: UNK
  8. ALLERGY MEDICATION [Suspect]
     Dosage: Unk, Unk
     Dates: end: 201105
  9. DRUG THERAPY NOS [Suspect]
     Indication: BLOOD PRESSURE ABNORMAL
     Dosage: Unk, Unk
  10. DRUG THERAPY NOS [Concomitant]
     Indication: BLOOD PRESSURE ABNORMAL

REACTIONS (8)
  - Pertussis [Recovered/Resolved]
  - Cough [Recovered/Resolved]
  - Flatulence [Recovered/Resolved]
  - Abdominal distension [Recovered/Resolved]
  - Dyspepsia [Recovered/Resolved]
  - Drug ineffective for unapproved indication [Unknown]
  - Prescribed overdose [Unknown]
  - Incorrect drug administration duration [Unknown]
